FAERS Safety Report 18350023 (Version 3)
Quarter: 2020Q4

REPORT INFORMATION
  Report Type: Spontaneous
  Country: US (occurrence: US)
  Receive Date: 20201006
  Receipt Date: 20201013
  Transmission Date: 20210114
  Serious: No
  Sender: FDA-Public Use
  Company Number: US-PFIZER INC-2020384264

PATIENT
  Age: 46 Year
  Sex: Female
  Weight: 83.91 kg

DRUGS (12)
  1. DESVENLAFAXINE SUCCINATE MONOHYDRATE [Suspect]
     Active Substance: DESVENLAFAXINE SUCCINATE
     Indication: ANXIETY
  2. BUSPIRONE HYDROCHLORIDE. [Concomitant]
     Active Substance: BUSPIRONE HYDROCHLORIDE
     Indication: ANXIETY
     Dosage: 10 MG
     Dates: start: 2020
  3. DESVENLAFAXINE SUCCINATE MONOHYDRATE [Suspect]
     Active Substance: DESVENLAFAXINE SUCCINATE
     Indication: DEPRESSION
     Dosage: 100 MG, 1X/DAY
     Route: 048
     Dates: start: 202008, end: 20200930
  4. OMEPRAZOLE. [Concomitant]
     Active Substance: OMEPRAZOLE
     Indication: GASTROOESOPHAGEAL REFLUX DISEASE
     Dosage: 20 MG, 1X/DAY
     Route: 048
     Dates: start: 2010
  5. BUSPIRONE HYDROCHLORIDE. [Concomitant]
     Active Substance: BUSPIRONE HYDROCHLORIDE
     Dosage: 20 MG
  6. BUSPIRONE HYDROCHLORIDE. [Concomitant]
     Active Substance: BUSPIRONE HYDROCHLORIDE
     Dosage: 30 MG, 1X/DAY
     Route: 048
  7. FLUVOXAMINE MALEATE. [Concomitant]
     Active Substance: FLUVOXAMINE MALEATE
     Indication: OBSESSIVE-COMPULSIVE DISORDER
     Dosage: 50 MG [50MG DOSE FOR A WEEK]
  8. LUVOX [Suspect]
     Active Substance: FLUVOXAMINE MALEATE
     Dosage: UNK
  9. CLONAZEPAM. [Concomitant]
     Active Substance: CLONAZEPAM
     Indication: ANXIETY
     Dosage: 0.5 MG, AS NEEDED [0.5MG TABLET BY MOUTH, AS NEEDED, UP TO THREE TIMES A DAY]
     Route: 048
  10. FLUVOXAMINE MALEATE. [Concomitant]
     Active Substance: FLUVOXAMINE MALEATE
     Indication: DEPRESSION
  11. DESVENLAFAXINE SUCCINATE MONOHYDRATE [Suspect]
     Active Substance: DESVENLAFAXINE SUCCINATE
     Indication: OBSESSIVE-COMPULSIVE DISORDER
     Dosage: 50 MG, DAILY
     Dates: start: 20200923
  12. FLUVOXAMINE MALEATE. [Concomitant]
     Active Substance: FLUVOXAMINE MALEATE
     Indication: ANXIETY
     Dosage: 100 MG, 1X/DAY
     Route: 048
     Dates: start: 20200923

REACTIONS (12)
  - Dizziness [Not Recovered/Not Resolved]
  - Insomnia [Not Recovered/Not Resolved]
  - Drug ineffective [Not Recovered/Not Resolved]
  - Depression [Not Recovered/Not Resolved]
  - Anxiety [Not Recovered/Not Resolved]
  - Wrong technique in product usage process [Unknown]
  - Obsessive-compulsive disorder [Not Recovered/Not Resolved]
  - Pyrexia [Unknown]
  - Oropharyngeal discomfort [Unknown]
  - Headache [Unknown]
  - Condition aggravated [Not Recovered/Not Resolved]
  - Influenza like illness [Unknown]

NARRATIVE: CASE EVENT DATE: 202009
